FAERS Safety Report 5049291-7 (Version None)
Quarter: 2006Q3

REPORT INFORMATION
  Report Type: 
  Country: None (occurrence: None)
  Receive Date: 20060706
  Receipt Date: 20060629
  Transmission Date: 20061208
  Serious: Yes (Death)
  Sender: FDA-Public Use
  Company Number: 2006-144891-NL

PATIENT
  Age: 2 Month
  Sex: Male

DRUGS (2)
  1. DANAPAROID [Suspect]
     Indication: THROMBECTOMY
     Dosage: 200 ANTI_XA Q1HR INTRAVENOUS (NOS)
     Route: 042
  2. HEPARIN [Concomitant]

REACTIONS (2)
  - PLATELET COUNT DECREASED [None]
  - VENA CAVA THROMBOSIS [None]
